FAERS Safety Report 24561458 (Version 1)
Quarter: 2024Q4

REPORT INFORMATION
  Report Type: Report from Study
  Country: US (occurrence: US)
  Receive Date: 20241029
  Receipt Date: 20241029
  Transmission Date: 20250115
  Serious: Yes (Other)
  Sender: Day One Biopharmaceuticals
  Company Number: US-Day One Biopharmaceuticals Inc.-2024US001038

PATIENT

DRUGS (2)
  1. OJEMDA [Suspect]
     Active Substance: TOVORAFENIB
     Indication: Brain neoplasm malignant
     Dosage: 500 MILLIGRAM
     Route: 065
     Dates: start: 2024
  2. OJEMDA [Suspect]
     Active Substance: TOVORAFENIB
     Dosage: 400 MILLIGRAM
     Route: 065
     Dates: start: 202409, end: 2024

REACTIONS (2)
  - Pneumonia [Unknown]
  - Accidental underdose [Unknown]

NARRATIVE: CASE EVENT DATE: 20240101
